FAERS Safety Report 6927100-6 (Version None)
Quarter: 2010Q3

REPORT INFORMATION
  Report Type: 
  Country: None (occurrence: None)
  Receive Date: 20100816
  Receipt Date: 20100813
  Transmission Date: 20110219
  Serious: No
  Sender: FDA-Public Use
  Company Number: US-ABBOTT-10P-163-0663564-00

PATIENT
  Sex: Male
  Weight: 90.8 kg

DRUGS (6)
  1. SIMCOR [Suspect]
     Indication: PRODUCT USED FOR UNKNOWN INDICATION
     Dosage: 1- 500/20 MG TABLET DAILY AT BEDTIME
     Dates: start: 20100301, end: 20100730
  2. SIMCOR [Suspect]
     Dosage: 2- 500/20 MG TABLETS DAILY AT BEDTIME
     Dates: start: 20100730, end: 20100806
  3. SIMCOR [Suspect]
     Dosage: 1- 500/20 MG TABLET DAILY AT BEDTIME
     Dates: start: 20100706
  4. ASPIRIN [Concomitant]
     Indication: PRODUCT USED FOR UNKNOWN INDICATION
     Dosage: DAILY AT HOUR OF SLEEP
  5. LISINOPRIL [Concomitant]
     Indication: PRODUCT USED FOR UNKNOWN INDICATION
  6. INSULIN [Concomitant]
     Indication: PRODUCT USED FOR UNKNOWN INDICATION

REACTIONS (3)
  - RASH ERYTHEMATOUS [None]
  - RASH MACULOVESICULAR [None]
  - RASH PRURITIC [None]
